FAERS Safety Report 7345418-2 (Version None)
Quarter: 2011Q1

REPORT INFORMATION
  Report Type: 
  Country: None (occurrence: None)
  Receive Date: 20110310
  Receipt Date: 20110303
  Transmission Date: 20110831
  Serious: Yes (Hospitalization)
  Sender: FDA-Public Use
  Company Number: US-GILEAD-2011-0037193

PATIENT
  Age: 50 Year
  Sex: Male

DRUGS (1)
  1. LETAIRIS [Suspect]
     Indication: PULMONARY HYPERTENSION
     Route: 048
     Dates: start: 20101118

REACTIONS (12)
  - CHEST PAIN [None]
  - HAEMOPTYSIS [None]
  - DIZZINESS [None]
  - VISUAL IMPAIRMENT [None]
  - EXERCISE TOLERANCE DECREASED [None]
  - RESPIRATORY TRACT IRRITATION [None]
  - COUGH [None]
  - DYSPNOEA [None]
  - FATIGUE [None]
  - OEDEMA [None]
  - PULMONARY ARTERIAL HYPERTENSION [None]
  - DYSPHONIA [None]
